FAERS Safety Report 4484147-X (Version None)
Quarter: 2004Q4

REPORT INFORMATION
  Report Type: 
  Country: None (occurrence: None)
  Receive Date: 20041025
  Receipt Date: 20041015
  Transmission Date: 20050328
  Serious: Yes (Hospitalization)
  Sender: FDA-Public Use
  Company Number: US-MERCK-0410USA02458

PATIENT
  Age: 67 Year
  Sex: Female

DRUGS (6)
  1. VIOXX [Suspect]
     Indication: BACK PAIN
     Route: 048
     Dates: end: 20040101
  2. NORVASC [Concomitant]
     Route: 065
  3. PRINIVIL [Concomitant]
     Route: 048
  4. ATENOLOL [Concomitant]
     Route: 065
  5. HYDRODIURIL [Concomitant]
     Route: 048
  6. NEXIUM [Concomitant]
     Route: 065

REACTIONS (1)
  - CARDIAC DISORDER [None]
